FAERS Safety Report 4836174-8 (Version None)
Quarter: 2005Q4

REPORT INFORMATION
  Report Type: 
  Country: None (occurrence: None)
  Receive Date: 20051121
  Receipt Date: 20051121
  Transmission Date: 20060501
  Serious: Yes (Other)
  Sender: FDA-Public Use
  Company Number: None

PATIENT
  Age: 49 Year
  Sex: Female
  Weight: 54.4316 kg

DRUGS (1)
  1. AVELOX [Suspect]
     Indication: PNEUMONIA BACTERIAL
     Dosage: ONE   QD   PO
     Route: 048
     Dates: start: 20051117, end: 20051119

REACTIONS (1)
  - MYALGIA [None]
